FAERS Safety Report 6706694-X (Version None)
Quarter: 2010Q2

REPORT INFORMATION
  Report Type: 
  Country: None (occurrence: None)
  Receive Date: 20100503
  Receipt Date: 20100423
  Transmission Date: 20101027
  Serious: Yes (Hospitalization)
  Sender: FDA-Public Use
  Company Number: CA-ELI_LILLY_AND_COMPANY-CA_030405888

PATIENT
  Sex: Male
  Weight: 53.3 kg

DRUGS (2)
  1. SOMATROPIN [Suspect]
     Indication: GROWTH HORMONE DEFICIENCY
     Dosage: 1.35 MG, DAILY (1/D)
     Route: 058
     Dates: start: 19970929, end: 20020917
  2. SYNTHROID [Concomitant]
     Indication: HYPOTHYROIDISM
     Dosage: UNK, UNKNOWN
     Dates: start: 19970929

REACTIONS (2)
  - MENINGIOMA [None]
  - MENINGIOMA SURGERY [None]
